FAERS Safety Report 16199727 (Version 3)
Quarter: 2024Q3

REPORT INFORMATION
  Report Type: Spontaneous
  Country: US (occurrence: US)
  Receive Date: 20190415
  Receipt Date: 20240808
  Transmission Date: 20241017
  Serious: No
  Sender: MERCK
  Company Number: US-009507513-1904USA005365

PATIENT
  Age: 83 Year
  Sex: Male

DRUGS (3)
  1. KEYTRUDA [Suspect]
     Active Substance: PEMBROLIZUMAB
     Indication: Malignant melanoma stage III
     Dosage: 200 MILLIGRAM, (TOTAL 6 CYCLES)
     Route: 042
  2. ROSE BENGAL SODIUM [Suspect]
     Active Substance: ROSE BENGAL SODIUM
     Indication: Malignant melanoma stage III
     Dosage: (PV-10) INJECTION, INJECTED IN 4-5 LESIONS FOR A TOTAL OF 3 CYCLES
     Route: 026
  3. TALIMOGENE LAHERPAREPVEC [Suspect]
     Active Substance: TALIMOGENE LAHERPAREPVEC
     Indication: Malignant melanoma stage III
     Dosage: TOTAL OF 3 T-VEC INJECTIONS (TOTAL 4ML OF 100 MILLION PFU/ML IN 7
     Route: 026

REACTIONS (1)
  - Therapy non-responder [Unknown]
